FAERS Safety Report 14555205 (Version 2)
Quarter: 2018Q1

REPORT INFORMATION
  Report Type: Report from Study
  Country: US (occurrence: US)
  Receive Date: 20180220
  Receipt Date: 20180319
  Transmission Date: 20180509
  Serious: Yes (Death)
  Sender: FDA-Public Use
  Company Number: US-HLSUS-2018-US-000038

PATIENT
  Age: 49 Year
  Sex: Male

DRUGS (2)
  1. DILANTIN [Concomitant]
     Active Substance: PHENYTOIN
     Route: 048
  2. CLOZARIL [Suspect]
     Active Substance: CLOZAPINE
     Indication: SCHIZOPHRENIA
     Dosage: 300 MG
     Route: 048
     Dates: start: 1990

REACTIONS (1)
  - Hypertensive heart disease [Fatal]

NARRATIVE: CASE EVENT DATE: 20180127
